FAERS Safety Report 20394988 (Version 1)
Quarter: 2022Q1

REPORT INFORMATION
  Report Type: Spontaneous
  Country: US (occurrence: US)
  Receive Date: 20220130
  Receipt Date: 20220130
  Transmission Date: 20220423
  Serious: No
  Sender: FDA-Public Use
  Company Number: US-SANOFI-00944876

PATIENT
  Age: 70 Year
  Sex: Male

DRUGS (1)
  1. DUPIXENT [Suspect]
     Active Substance: DUPILUMAB

REACTIONS (3)
  - Arthralgia [Recovered/Resolved]
  - Musculoskeletal stiffness [Recovered/Resolved]
  - Limb discomfort [Recovered/Resolved]
